FAERS Safety Report 9235654 (Version 2)
Quarter: 2013Q2

REPORT INFORMATION
  Report Type: Spontaneous
  Country: FR (occurrence: FR)
  Receive Date: 20130417
  Receipt Date: 20130510
  Transmission Date: 20140414
  Serious: Yes (Hospitalization, Other)
  Sender: FDA-Public Use
  Company Number: FR-BAYER-2013-046730

PATIENT
  Age: 66 Year
  Sex: Female
  Weight: 40 kg

DRUGS (2)
  1. NEXAVAR [Suspect]
     Indication: HEPATOCELLULAR CARCINOMA
     Dosage: 400 MG, BID
     Route: 048
     Dates: start: 20130304, end: 20130319
  2. NEXAVAR [Suspect]
     Indication: RENAL CANCER

REACTIONS (6)
  - Palmar-plantar erythrodysaesthesia syndrome [Recovering/Resolving]
  - Alopecia [Recovering/Resolving]
  - Hepatocellular injury [None]
  - Mucosal inflammation [None]
  - Skin exfoliation [None]
  - Rash [None]
